FAERS Safety Report 20734909 (Version 1)
Quarter: 2022Q2

REPORT INFORMATION
  Report Type: Spontaneous
  Country: US (occurrence: None)
  Receive Date: 20220420
  Receipt Date: 20220420
  Transmission Date: 20220720
  Serious: Yes (Life-Threatening, Hospitalization, Disabling)
  Sender: FDA-Public Use
  Company Number: None

PATIENT
  Age: 70 Year
  Sex: Female
  Weight: 72.45 kg

DRUGS (1)
  1. TRELEGY ELLIPTA [Suspect]
     Active Substance: FLUTICASONE FUROATE\UMECLIDINIUM BROMIDE\VILANTEROL TRIFENATATE
     Indication: Chronic obstructive pulmonary disease
     Dosage: OTHER STRENGTH : MCG;?OTHER QUANTITY : 1 PUFF(S);?FREQUENCY : DAILY;?
     Route: 048

REACTIONS (11)
  - Constipation [None]
  - Tremor [None]
  - Pain [None]
  - Muscle spasms [None]
  - Dyspepsia [None]
  - Abdominal pain upper [None]
  - Decreased appetite [None]
  - Nausea [None]
  - Dyspnoea [None]
  - Dysphonia [None]
  - Gait disturbance [None]

NARRATIVE: CASE EVENT DATE: 20220314
